FAERS Safety Report 4294332-8 (Version None)
Quarter: 2004Q1

REPORT INFORMATION
  Report Type: 
  Country: None (occurrence: None)
  Receive Date: 20040211
  Receipt Date: 20030812
  Transmission Date: 20041129
  Serious: No
  Sender: FDA-Public Use
  Company Number: US-GLAXOSMITHKLINE-A0420849A

PATIENT
  Age: 46 Year
  Sex: Female

DRUGS (3)
  1. LAMICTAL [Suspect]
     Indication: BIPOLAR DISORDER
     Dosage: 150MG TWICE PER DAY
     Route: 048
     Dates: start: 20030415
  2. ADDERALL [Concomitant]
  3. DIOVAN HCT [Concomitant]

REACTIONS (3)
  - ALOPECIA [None]
  - DYSPNOEA [None]
  - VISION BLURRED [None]
